FAERS Safety Report 13256407 (Version 1)
Quarter: 2017Q1

REPORT INFORMATION
  Report Type: Spontaneous
  Country: US (occurrence: US)
  Receive Date: 20170220
  Receipt Date: 20170220
  Transmission Date: 20170428
  Serious: Yes (Other)
  Sender: FDA-Public Use
  Company Number: None

PATIENT
  Age: 52 Year
  Sex: Female
  Weight: 83.25 kg

DRUGS (20)
  1. VALACYCLOVIR [Concomitant]
     Active Substance: VALACYCLOVIR HYDROCHLORIDE
  2. CICLOPIROX 8% [Suspect]
     Active Substance: CICLOPIROX
     Indication: FUNGAL INFECTION
     Dosage: TWICE A DAY TOPICAL 1 SURFACE?
     Route: 061
  3. NITROFURANTONIN [Concomitant]
  4. HYDROCODONE BITARTRATE. [Concomitant]
     Active Substance: HYDROCODONE BITARTRATE
  5. BACLOFEN. [Concomitant]
     Active Substance: BACLOFEN
  6. MULTI-VITAMIN [Concomitant]
     Active Substance: .ALPHA.-TOCOPHEROL ACETATE, DL-\ASCORBIC ACID\CYANOCOBALAMIN\FLUORIDE ION\FOLIC ACID\NIACIN\PYRIDOXINE\RIBOFLAVIN\THIAMINE\VITAMIN A\VITAMIN D
  7. VITAMIN B12 [Concomitant]
     Active Substance: CYANOCOBALAMIN
  8. OMEPRAZOLE. [Concomitant]
     Active Substance: OMEPRAZOLE
  9. CYCLOBENZAPRINE [Concomitant]
     Active Substance: CYCLOBENZAPRINE
  10. VITAMIN C [Concomitant]
     Active Substance: ASCORBIC ACID
  11. AZITHROMYACIN [Concomitant]
  12. TIZANIDINE. [Concomitant]
     Active Substance: TIZANIDINE
  13. LOSARTAN POTASSIUM. [Concomitant]
     Active Substance: LOSARTAN POTASSIUM
  14. DULOXETINE. [Concomitant]
     Active Substance: DULOXETINE
  15. KETEROLAC [Concomitant]
  16. LOW-DOSE ASPIRIN [Concomitant]
     Active Substance: ASPIRIN
  17. CIPRO [Concomitant]
     Active Substance: CIPROFLOXACIN HYDROCHLORIDE
  18. CELECOXIB. [Concomitant]
     Active Substance: CELECOXIB
  19. ATORVASTATIN [Concomitant]
     Active Substance: ATORVASTATIN
  20. TEMAZEPAM. [Concomitant]
     Active Substance: TEMAZEPAM

REACTIONS (4)
  - Nail growth abnormal [None]
  - Hypoaesthesia [None]
  - Nail discolouration [None]
  - Haemorrhage [None]

NARRATIVE: CASE EVENT DATE: 20161221
